FAERS Safety Report 9877460 (Version 1)
Quarter: 2014Q1

REPORT INFORMATION
  Report Type: Spontaneous
  Country: ES (occurrence: ES)
  Receive Date: 20140206
  Receipt Date: 20140206
  Transmission Date: 20141002
  Serious: Yes (Other)
  Sender: FDA-Public Use
  Company Number: ES-TEVA-460860ISR

PATIENT
  Age: 28 Year
  Sex: Male

DRUGS (5)
  1. FLUOXETINE [Suspect]
     Route: 065
  2. FLUOXETINE [Interacting]
     Dosage: 40 MILLIGRAM DAILY;
     Route: 065
  3. ARIPIPRAZOLE [Interacting]
     Route: 065
  4. TOPIRAMATE [Concomitant]
     Dosage: 100MG
     Route: 065
  5. TOPIRAMATE [Concomitant]
     Dosage: 150MG
     Route: 065

REACTIONS (5)
  - Ventricular arrhythmia [Recovering/Resolving]
  - Drug interaction [Recovering/Resolving]
  - Atrial fibrillation [Unknown]
  - Bundle branch block right [Unknown]
  - Supraventricular extrasystoles [Unknown]
